FAERS Safety Report 14917839 (Version 3)
Quarter: 2019Q2

REPORT INFORMATION
  Report Type: Spontaneous
  Country: IE (occurrence: IE)
  Receive Date: 20180521
  Receipt Date: 20190408
  Transmission Date: 20190711
  Serious: Yes (Other)
  Sender: FDA-Public Use
  Company Number: IE-SUN PHARMACEUTICAL INDUSTRIES LTD-2018R1-173318

PATIENT
  Sex: Female
  Weight: 1.5 kg

DRUGS (19)
  1. OXYGEN. [Suspect]
     Active Substance: OXYGEN
     Dosage: MATERNAL DOSE: 50 L/MIN ()
     Route: 064
  2. ADRENALINE [Suspect]
     Active Substance: EPINEPHRINE
     Indication: INFILTRATION ANAESTHESIA
     Dosage: 1 IN 200 000 (15 ML)
     Route: 064
  3. ALPRAZOLAM. [Suspect]
     Active Substance: ALPRAZOLAM
     Indication: FOETAL EXPOSURE DURING PREGNANCY
     Dosage: 250 ?G, BID
     Route: 064
  4. PARACETAMOL [Suspect]
     Active Substance: ACETAMINOPHEN
     Indication: FOETAL EXPOSURE DURING PREGNANCY
     Dosage: UNK
     Route: 064
  5. RANITIDINE. [Suspect]
     Active Substance: RANITIDINE
     Indication: FOETAL EXPOSURE DURING PREGNANCY
     Dosage: MATERNAL DOSE: 150 MG ()
     Route: 064
  6. DEXMEDETOMIDINE. [Suspect]
     Active Substance: DEXMEDETOMIDINE
     Indication: FOETAL EXPOSURE DURING PREGNANCY
  7. PROPOFOL. [Suspect]
     Active Substance: PROPOFOL
     Indication: FOETAL EXPOSURE DURING PREGNANCY
     Dosage: MATERNAL DOSE: 180 MG ()
     Route: 064
  8. LEVOBUPIVACAINE [Suspect]
     Active Substance: LEVOBUPIVACAINE
     Indication: FOETAL EXPOSURE DURING PREGNANCY
     Dosage: MATERNAL DOSE: 30 ML ()
     Route: 064
  9. EPINEPHRINE. [Suspect]
     Active Substance: EPINEPHRINE
     Indication: FOETAL EXPOSURE DURING PREGNANCY
     Dosage: MATERNAL DOSE: 15 ML ()
     Route: 064
  10. DEXMEDETOMIDINE. [Suspect]
     Active Substance: DEXMEDETOMIDINE
     Indication: ANAESTHESIA
     Dosage: MATERNAL DOSE: 0.8-1.0 UG/KG/H ()
     Route: 064
  11. ROCURONIUM [Suspect]
     Active Substance: ROCURONIUM BROMIDE
     Indication: FOETAL EXPOSURE DURING PREGNANCY
     Dosage: MATERNAL DOSE: 1MG/KG ()
     Route: 064
  12. OXYGEN. [Suspect]
     Active Substance: OXYGEN
     Indication: FOETAL EXPOSURE DURING PREGNANCY
     Dosage: MATERNAL DOSE: 15 L/MIN ()
     Route: 064
  13. DICLOFENAC [Suspect]
     Active Substance: DICLOFENAC
     Indication: FOETAL EXPOSURE DURING PREGNANCY
     Dosage: UNK
     Route: 064
  14. DEXMEDETOMIDINE. [Suspect]
     Active Substance: DEXMEDETOMIDINE
     Indication: ANXIOLYTIC THERAPY
     Dosage: UNK
     Route: 064
  15. OMEPRAZOLE. [Suspect]
     Active Substance: OMEPRAZOLE
     Indication: FOETAL EXPOSURE DURING PREGNANCY
     Dosage: 20 MG, DAILY
     Route: 064
  16. LIDOCAINE. [Suspect]
     Active Substance: LIDOCAINE
     Indication: FOETAL EXPOSURE DURING PREGNANCY
     Dosage: UNK
     Route: 064
  17. DEXMEDETOMIDINE. [Suspect]
     Active Substance: DEXMEDETOMIDINE
     Indication: ANALGESIC THERAPY
     Dosage: 0.8 MICROG/KG OVER 10 MINUTES
     Route: 064
  18. PROPOFOL. [Suspect]
     Active Substance: PROPOFOL
     Indication: ANAESTHESIA
     Dosage: MATERNAL DOSE: 4-6 UG/ML ()
     Route: 064
  19. SODIUM CITRATE. [Suspect]
     Active Substance: SODIUM CITRATE
     Indication: FOETAL EXPOSURE DURING PREGNANCY
     Dosage: MATERNAL DOSE: 30 ML ()
     Route: 064

REACTIONS (3)
  - Foetal exposure during pregnancy [Unknown]
  - Premature baby [Unknown]
  - Low birth weight baby [Unknown]
